FAERS Safety Report 15517543 (Version 1)
Quarter: 2018Q4

REPORT INFORMATION
  Report Type: Spontaneous
  Country: DE (occurrence: DE)
  Receive Date: 20181017
  Receipt Date: 20181017
  Transmission Date: 20190205
  Serious: Yes (Other)
  Sender: FDA-Public Use
  Company Number: DE-MYLANLABS-2018M1076426

PATIENT
  Age: 23 Year
  Sex: Male

DRUGS (3)
  1. PAROXETINE. [Suspect]
     Active Substance: PAROXETINE
     Indication: PRODUCT USED FOR UNKNOWN INDICATION
     Dosage: 40 MG, QD (1-0-0-0)
  2. LORAZEPAM. [Suspect]
     Active Substance: LORAZEPAM
     Indication: PRODUCT USED FOR UNKNOWN INDICATION
     Dosage: 1 MG, QD (2-0-0-0)
  3. VALPROIC ACID. [Suspect]
     Active Substance: VALPROIC ACID
     Indication: PRODUCT USED FOR UNKNOWN INDICATION
     Dosage: 650 MG, QD (1-0-0-0)

REACTIONS (9)
  - Illusion [Unknown]
  - Product used for unknown indication [Unknown]
  - Headache [Unknown]
  - Paraesthesia [Unknown]
  - Accidental overdose [Unknown]
  - Feeling abnormal [Unknown]
  - Fatigue [Unknown]
  - Acute respiratory failure [Unknown]
  - Balance disorder [Unknown]
